FAERS Safety Report 16995116 (Version 4)
Quarter: 2022Q1

REPORT INFORMATION
  Report Type: Report from Study
  Country: FR (occurrence: FR)
  Receive Date: 20191105
  Receipt Date: 20220130
  Transmission Date: 20220423
  Serious: Yes (Death, Other)
  Sender: FDA-Public Use
  Company Number: FR-JAZZ-2019-FR-015144

PATIENT
  Age: 47 Year
  Sex: Female
  Weight: 91 kg

DRUGS (4)
  1. DEFITELIO [Suspect]
     Active Substance: DEFIBROTIDE SODIUM
     Indication: Venoocclusive disease
     Dosage: 25 MG/KG/DAY
     Route: 065
     Dates: start: 20160925, end: 20160925
  2. SOLU-MEDROL [Suspect]
     Active Substance: METHYLPREDNISOLONE SODIUM SUCCINATE
     Indication: Graft versus host disease
     Dosage: 10MG,UNKNOWN
     Route: 042
     Dates: start: 20170103
  3. CANCIDAS [Suspect]
     Active Substance: CASPOFUNGIN ACETATE
     Indication: Systemic candida
     Dosage: 10 MG,UNKNOWN
     Route: 042
     Dates: start: 20161101
  4. AMOXICILLIN [Suspect]
     Active Substance: AMOXICILLIN
     Indication: Prophylaxis
     Dosage: 15 GRAMS, UNKNOWN
     Route: 048
     Dates: start: 20161024

REACTIONS (6)
  - Infection [Fatal]
  - Multiple organ dysfunction syndrome [Fatal]
  - Septic shock [Fatal]
  - Haemorrhagic disorder [Unknown]
  - Acute graft versus host disease [Unknown]
  - Off label use [Unknown]

NARRATIVE: CASE EVENT DATE: 20160925
